FAERS Safety Report 20278916 (Version 1)
Quarter: 2022Q1

REPORT INFORMATION
  Report Type: Report from Study
  Country: IE (occurrence: GB)
  Receive Date: 20220103
  Receipt Date: 20220103
  Transmission Date: 20220424
  Serious: Yes (Hospitalization, Other)
  Sender: FDA-Public Use
  Company Number: IE-NOVARTISPH-NVSC2021GB294566

PATIENT
  Age: 7 Year
  Sex: Male
  Weight: 19 kg

DRUGS (5)
  1. ZYKADIA [Suspect]
     Active Substance: CERITINIB
     Indication: Glioblastoma multiforme
     Dosage: 300 MG
     Route: 048
     Dates: start: 20161014, end: 20211123
  2. ONDANSETRON [Concomitant]
     Active Substance: ONDANSETRON
     Indication: Vomiting
     Dosage: 4 MG
     Route: 065
     Dates: start: 2015, end: 20211123
  3. KEPPRA [Concomitant]
     Active Substance: LEVETIRACETAM
     Indication: Seizure
     Dosage: 190 MG
     Route: 065
     Dates: start: 2015, end: 20211123
  4. CYCLIZINE [Concomitant]
     Active Substance: CYCLIZINE
     Indication: Vomiting
     Dosage: 15 MG
     Route: 065
     Dates: start: 2015, end: 20211123
  5. SEPTRAN [Concomitant]
     Indication: Prophylaxis
     Dosage: 240 MG
     Route: 065
     Dates: start: 2015, end: 20211121

REACTIONS (7)
  - Hepatic failure [Recovered/Resolved]
  - Acute kidney injury [Recovered/Resolved]
  - Hepatic encephalopathy [Unknown]
  - Hypertension [Unknown]
  - Hypoglycaemic seizure [Unknown]
  - Liver function test increased [Recovering/Resolving]
  - Diarrhoea [Unknown]

NARRATIVE: CASE EVENT DATE: 20211123
